FAERS Safety Report 4707929-5 (Version None)
Quarter: 2005Q2

REPORT INFORMATION
  Report Type: 
  Country: None (occurrence: None)
  Receive Date: 20050629
  Receipt Date: 20050321
  Transmission Date: 20051028
  Serious: No
  Sender: FDA-Public Use
  Company Number: 05P-163-0294592

PATIENT
  Age: 49 Year
  Sex: Female

DRUGS (9)
  1. HUMIRA [Suspect]
     Indication: RHEUMATOID ARTHRITIS
     Dosage: 40 MG, 1 IN 2 WK, SUBCUTANEOUS
     Route: 058
     Dates: start: 20050112
  2. ATENOLOL [Concomitant]
  3. TELMISARTAN [Concomitant]
  4. LEXAPRO [Concomitant]
  5. PREDNISONE TAB [Concomitant]
  6. LEVOTHYROXINE SODIUM [Concomitant]
  7. FOLIC ACID [Concomitant]
  8. LANSOPRAZOLE [Concomitant]
  9. METHOTREXATE SODIUM [Concomitant]

REACTIONS (1)
  - MYALGIA [None]
